FAERS Safety Report 6920067-6 (Version None)
Quarter: 2010Q3

REPORT INFORMATION
  Report Type: 
  Country: None (occurrence: None)
  Receive Date: 20100811
  Receipt Date: 20100803
  Transmission Date: 20110219
  Serious: Yes (Other)
  Sender: FDA-Public Use
  Company Number: DE-PFIZER INC-2010094650

PATIENT
  Age: 69 Year
  Sex: Female

DRUGS (1)
  1. ZELDOX [Suspect]
     Indication: NERVOUSNESS
     Dosage: 20 MG, UNK
     Dates: start: 20081001, end: 20090301

REACTIONS (2)
  - BURSITIS INFECTIVE [None]
  - POLYARTHRITIS [None]
